FAERS Safety Report 8945212 (Version 1)
Quarter: 2012Q4

REPORT INFORMATION
  Report Type: 
  Country: US (occurrence: US)
  Receive Date: 20121204
  Receipt Date: 20121204
  Transmission Date: 20130627
  Serious: No
  Sender: FDA-Public Use
  Company Number: US-AMGEN-USASP2012066665

PATIENT
  Age: 64 Year
  Sex: Female

DRUGS (4)
  1. ENBREL [Suspect]
     Indication: RHEUMATOID ARTHRITIS
     Dosage: 50 mg, qwk
     Dates: start: 20120415, end: 20121014
  2. PREDNISONE [Concomitant]
     Dosage: 5 mg, qd
     Dates: start: 201110
  3. PREDNISONE [Concomitant]
     Dosage: 5 mg, qd
  4. METHOTREXATE [Concomitant]
     Dosage: 20 mg, qwk
     Dates: start: 2007

REACTIONS (2)
  - Therapeutic response decreased [Not Recovered/Not Resolved]
  - Arthralgia [Not Recovered/Not Resolved]
